FAERS Safety Report 8588198-5 (Version None)
Quarter: 2012Q3

REPORT INFORMATION
  Report Type: 
  Country: None (occurrence: None)
  Receive Date: 20120803
  Receipt Date: 20120803
  Transmission Date: 20120928
  Serious: Yes (Life-Threatening, Other)
  Sender: FDA-Public Use
  Company Number: None

PATIENT
  Age: 51 Year
  Sex: Female
  Weight: 49.8957 kg

DRUGS (5)
  1. ATENOLOL [Concomitant]
  2. LISINOPRIL [Concomitant]
  3. HYDROCHLOROTHIAZIDE [Concomitant]
  4. LUPRON [Suspect]
     Indication: MENOPAUSE
     Dosage: 1 X PER MONTH IM
     Route: 030
     Dates: start: 20120227, end: 20120430
  5. IBUPROFEN [Concomitant]

REACTIONS (19)
  - HYPERTENSION [None]
  - NIGHT SWEATS [None]
  - ARTHRALGIA [None]
  - JOINT STIFFNESS [None]
  - FATIGUE [None]
  - WEIGHT INCREASED [None]
  - MALAISE [None]
  - MUSCULOSKELETAL STIFFNESS [None]
  - FEELING ABNORMAL [None]
  - SYNCOPE [None]
  - HOT FLUSH [None]
  - DIZZINESS [None]
  - HEART RATE INCREASED [None]
  - BLOOD PRESSURE FLUCTUATION [None]
  - ASTHENIA [None]
  - DYSPNOEA [None]
  - TREMOR [None]
  - CHEST DISCOMFORT [None]
  - LOSS OF CONSCIOUSNESS [None]
